FAERS Safety Report 8035177 (Version 2)
Quarter: 2013Q1

REPORT INFORMATION
  Report Type: Report from Study
  Country: HU (occurrence: HU)
  Receive Date: 20110714
  Receipt Date: 20130207
  Transmission Date: 20140127
  Serious: Yes (Death, Life-Threatening, Hospitalization)
  Sender: FDA-Public Use
  Company Number: HU-ELI_LILLY_AND_COMPANY-10-11-00105

PATIENT
  Age: 73 Year
  Sex: Male
  Weight: 78 kg

DRUGS (9)
  1. NECITUMUMAB [Suspect]
     Indication: NON-SMALL CELL LUNG CANCER
     Dosage: 800 MG, UNK
     Route: 042
     Dates: start: 20100511
  2. PEMETREXED [Suspect]
     Indication: NON-SMALL CELL LUNG CANCER
     Dosage: 900 MG, WEEKLY (1/W)
     Route: 042
     Dates: start: 20100511
  3. CISPLATIN [Suspect]
     Indication: NON-SMALL CELL LUNG CANCER
     Dosage: 135 MG, WEEKLY (1/W)
     Route: 042
     Dates: start: 20100511
  4. NEUPOGEN [Concomitant]
     Indication: WHITE BLOOD CELL COUNT DECREASED
     Dosage: UNK, UNK
     Dates: start: 201005
  5. FOLIC ACID [Concomitant]
     Indication: PROPHYLAXIS
  6. MEDROL [Concomitant]
     Indication: PROPHYLAXIS
  7. NAVOBAN [Concomitant]
     Indication: PROPHYLAXIS
  8. EMETRON [Concomitant]
     Indication: PROPHYLAXIS
  9. VITAMIN B12 [Concomitant]
     Indication: PROPHYLAXIS

REACTIONS (3)
  - Malignant neoplasm progression [Fatal]
  - Asthenia [Not Recovered/Not Resolved]
  - Diarrhoea [Unknown]
